FAERS Safety Report 25456450 (Version 1)
Quarter: 2025Q2

REPORT INFORMATION
  Report Type: Spontaneous
  Country: TT (occurrence: TT)
  Receive Date: 20250619
  Receipt Date: 20250619
  Transmission Date: 20250716
  Serious: Yes (Disabling)
  Sender: SANDOZ
  Company Number: TT-SANDOZ-SDZ2025TT041940

PATIENT
  Age: 45 Year
  Sex: Male

DRUGS (1)
  1. CANDESARTAN CILEXETIL\HYDROCHLOROTHIAZIDE [Suspect]
     Active Substance: CANDESARTAN CILEXETIL\HYDROCHLOROTHIAZIDE
     Indication: Hypertension
     Dosage: 16/12.5MG, QD
     Route: 048
     Dates: start: 20250609, end: 20250609

REACTIONS (2)
  - Peripheral swelling [Recovered/Resolved]
  - Pruritus [Recovered/Resolved]

NARRATIVE: CASE EVENT DATE: 20250609
